FAERS Safety Report 5937958-5 (Version None)
Quarter: 2008Q4

REPORT INFORMATION
  Report Type: 
  Country: None (occurrence: None)
  Receive Date: 20081031
  Receipt Date: 20081020
  Transmission Date: 20090506
  Serious: Yes (Hospitalization, Disabling)
  Sender: FDA-Public Use
  Company Number: JP-PFIZER INC-2008059685

PATIENT
  Age: 68 Year
  Sex: Male

DRUGS (4)
  1. CELECOX [Suspect]
     Indication: OSTEOARTHRITIS
     Route: 048
     Dates: start: 20080112
  2. GASTER OD [Concomitant]
     Indication: GASTRIC ULCER
     Route: 048
     Dates: start: 20021224
  3. LEVOTHYROXINE SODIUM [Concomitant]
     Indication: HYPOTHYROIDISM
     Dosage: DAILY DOSE:100MCG-FREQ:DAILY
     Route: 048
     Dates: start: 20040707
  4. OPALMON [Concomitant]
     Indication: RAYNAUD'S PHENOMENON
     Dates: start: 20080417

REACTIONS (1)
  - SUBARACHNOID HAEMORRHAGE [None]
